FAERS Safety Report 7157511-8 (Version None)
Quarter: 2010Q4

REPORT INFORMATION
  Report Type: 
  Country: None (occurrence: None)
  Receive Date: 20101214
  Receipt Date: 20100216
  Transmission Date: 20110411
  Serious: No
  Sender: FDA-Public Use
  Company Number: US-ASTRAZENECA-2010SE06872

PATIENT
  Age: 41 Year
  Sex: Female
  Weight: 88.5 kg

DRUGS (1)
  1. CRESTOR [Suspect]
     Indication: BLOOD CHOLESTEROL INCREASED
     Route: 048
     Dates: start: 20100211

REACTIONS (4)
  - COUGH [None]
  - HEADACHE [None]
  - LIP SWELLING [None]
  - UPPER RESPIRATORY TRACT CONGESTION [None]
